FAERS Safety Report 11718640 (Version 1)
Quarter: 2015Q4

REPORT INFORMATION
  Report Type: Spontaneous
  Country: US (occurrence: US)
  Receive Date: 20151109
  Receipt Date: 20151109
  Transmission Date: 20160304
  Serious: Yes (Other)
  Sender: FDA-Public Use
  Company Number: US-FRI-1000080631

PATIENT
  Sex: Female

DRUGS (2)
  1. SAVELLA [Suspect]
     Active Substance: MILNACIPRAN HYDROCHLORIDE
     Dosage: 25 MG
     Dates: start: 20151016, end: 20151029
  2. SAVELLA [Suspect]
     Active Substance: MILNACIPRAN HYDROCHLORIDE
     Indication: FIBROMYALGIA
     Dosage: 12.5 MG
     Route: 048
     Dates: start: 20151009, end: 20151015

REACTIONS (5)
  - Anxiety [Recovering/Resolving]
  - Pain in extremity [Recovering/Resolving]
  - Cardiac flutter [Recovered/Resolved]
  - Nausea [Recovered/Resolved]
  - Unevaluable event [Recovering/Resolving]

NARRATIVE: CASE EVENT DATE: 20151025
